FAERS Safety Report 9378102 (Version 1)
Quarter: 2013Q3

REPORT INFORMATION
  Report Type: Spontaneous
  Country: FR (occurrence: FR)
  Receive Date: 20130701
  Receipt Date: 20130701
  Transmission Date: 20140515
  Serious: Yes (Other)
  Sender: FDA-Public Use
  Company Number: FR-TEVA-416204ISR

PATIENT
  Age: 92 Year
  Sex: Female

DRUGS (1)
  1. FUROSEMIDE TEVA [Suspect]
     Route: 048
     Dates: start: 20130607, end: 20130609

REACTIONS (4)
  - Disturbance in attention [Recovered/Resolved]
  - Amnesia [Recovered/Resolved]
  - Somnolence [Recovered/Resolved]
  - Oedema peripheral [Unknown]
